FAERS Safety Report 24396857 (Version 1)
Quarter: 2024Q4

REPORT INFORMATION
  Report Type: Spontaneous
  Country: DE (occurrence: DE)
  Receive Date: 20241004
  Receipt Date: 20241004
  Transmission Date: 20250115
  Serious: Yes (Life-Threatening, Hospitalization)
  Sender: ALEXION PHARMACEUTICALS
  Company Number: DE-AstraZeneca-CH-00715192AM

PATIENT

DRUGS (6)
  1. DAPAGLIFLOZIN [Suspect]
     Active Substance: DAPAGLIFLOZIN
  2. DAPAGLIFLOZIN [Suspect]
     Active Substance: DAPAGLIFLOZIN
  3. DAPAGLIFLOZIN [Suspect]
     Active Substance: DAPAGLIFLOZIN
  4. DAPAGLIFLOZIN [Suspect]
     Active Substance: DAPAGLIFLOZIN
  5. INSULIN NOS [Concomitant]
     Active Substance: INSULIN NOS
  6. INSULIN NOS [Concomitant]
     Active Substance: INSULIN NOS
     Route: 065

REACTIONS (3)
  - Choking sensation [Unknown]
  - Dyspnoea [Unknown]
  - Blood glucose decreased [Unknown]
